FAERS Safety Report 25449602 (Version 1)
Quarter: 2025Q2

REPORT INFORMATION
  Report Type: Spontaneous
  Country: FR (occurrence: FR)
  Receive Date: 20250618
  Receipt Date: 20250618
  Transmission Date: 20250717
  Serious: Yes (Hospitalization, Other)
  Sender: AUROBINDO
  Company Number: FR-GSK-FR2024GSK154124

PATIENT
  Age: 82 Year
  Sex: Female

DRUGS (7)
  1. CARBOPLATIN [Suspect]
     Active Substance: CARBOPLATIN
     Indication: Neoplasm
     Route: 042
     Dates: start: 20241129
  2. CARBOPLATIN [Suspect]
     Active Substance: CARBOPLATIN
     Route: 042
     Dates: start: 20250228, end: 20250307
  3. PACLITAXEL [Suspect]
     Active Substance: PACLITAXEL
     Indication: Neoplasm
     Route: 042
     Dates: start: 20241129
  4. PACLITAXEL [Suspect]
     Active Substance: PACLITAXEL
     Route: 042
     Dates: start: 20250228, end: 20250307
  5. DOSTARLIMAB [Suspect]
     Active Substance: DOSTARLIMAB
     Indication: Neoplasm
     Route: 042
     Dates: start: 20241129
  6. DOSTARLIMAB [Suspect]
     Active Substance: DOSTARLIMAB
     Route: 042
     Dates: start: 20250326, end: 20250326
  7. METHYLPREDNISOLONE [Suspect]
     Active Substance: METHYLPREDNISOLONE
     Indication: Product used for unknown indication
     Route: 065

REACTIONS (8)
  - Thrombocytopenia [Recovered/Resolved]
  - Troponin increased [Unknown]
  - Alanine aminotransferase increased [Unknown]
  - Aspartate aminotransferase increased [Unknown]
  - Myocarditis-myositis-myasthenia gravis overlap syndrome [Unknown]
  - Erythema [Unknown]
  - Anaemia [Recovered/Resolved]
  - Neutrophilia [Not Recovered/Not Resolved]

NARRATIVE: CASE EVENT DATE: 20241129
